FAERS Safety Report 17332447 (Version 1)
Quarter: 2020Q1

REPORT INFORMATION
  Report Type: Spontaneous
  Country: US (occurrence: US)
  Receive Date: 20200124
  Receipt Date: 20200124
  Transmission Date: 20200409
  Serious: No
  Sender: FDA-Public Use
  Company Number: None

PATIENT
  Age: 34 Year
  Sex: Male
  Weight: 112.5 kg

DRUGS (1)
  1. MIRACLEZEN EXTREME 1750 MG [DIETARY SUPPLEMENT] [Suspect]
     Active Substance: DIETARY SUPPLEMENT
     Indication: ERECTILE DYSFUNCTION
     Dates: start: 20200121, end: 20200121

REACTIONS (1)
  - Headache [None]

NARRATIVE: CASE EVENT DATE: 20200114
